FAERS Safety Report 17362668 (Version 2)
Quarter: 2020Q1

REPORT INFORMATION
  Report Type: Spontaneous
  Country: IN (occurrence: IN)
  Receive Date: 20200203
  Receipt Date: 20200312
  Transmission Date: 20200409
  Serious: Yes (Hospitalization, Other)
  Sender: FDA-Public Use
  Company Number: IN-GLAXOSMITHKLINE-IN2020APC013063

PATIENT
  Age: 7 Year
  Sex: Female

DRUGS (1)
  1. SUPACEF [Suspect]
     Active Substance: CEFUROXIME
     Indication: PRODUCT USED FOR UNKNOWN INDICATION
     Dosage: UNK
     Route: 042

REACTIONS (2)
  - Hypersensitivity [Recovered/Resolved]
  - Talipes [Unknown]

NARRATIVE: CASE EVENT DATE: 20200120
